FAERS Safety Report 6998705-1 (Version None)
Quarter: 2010Q3

REPORT INFORMATION
  Report Type: 
  Country: None (occurrence: None)
  Receive Date: 20100920
  Receipt Date: 20100203
  Transmission Date: 20110219
  Serious: Yes (Hospitalization)
  Sender: FDA-Public Use
  Company Number: US-ASTRAZENECA-2010SE02341

PATIENT
  Age: 38 Year
  Sex: Female
  Weight: 95.3 kg

DRUGS (6)
  1. SEROQUEL [Suspect]
     Indication: BIPOLAR DISORDER
     Route: 048
     Dates: start: 20061101, end: 20071201
  2. HALDOL [Concomitant]
     Indication: MANIA
     Dosage: AS REQUIRED
     Dates: start: 20080101
  3. LITHIUM CARBONATE [Concomitant]
     Dates: start: 19940101
  4. LORAZEPAM [Concomitant]
     Dates: start: 20060101, end: 20070101
  5. LEXAPRO [Concomitant]
     Dates: start: 19940101
  6. DOXEPIN HCL [Concomitant]
     Dates: start: 20080101, end: 20090101

REACTIONS (3)
  - DIABETIC KETOACIDOSIS [None]
  - OBESITY [None]
  - TYPE 2 DIABETES MELLITUS [None]
